FAERS Safety Report 18414560 (Version 2)
Quarter: 2020Q4

REPORT INFORMATION
  Report Type: Spontaneous
  Country: ES (occurrence: ES)
  Receive Date: 20201022
  Receipt Date: 20201124
  Transmission Date: 20210114
  Serious: Yes (Other)
  Sender: FDA-Public Use
  Company Number: ES-ACCORD-205799

PATIENT
  Age: 83 Year
  Sex: Female

DRUGS (4)
  1. LOPINAVIR/RITONAVIR [Suspect]
     Active Substance: LOPINAVIR\RITONAVIR
     Indication: COVID-19
  2. ENOXAPARIN [Suspect]
     Active Substance: ENOXAPARIN
     Indication: ATRIAL FIBRILLATION
     Dosage: 80 MG, BID
  3. HYDROXYCHLOROQUINE [Suspect]
     Active Substance: HYDROXYCHLOROQUINE
     Indication: COVID-19
  4. RIVAROXABAN [Concomitant]
     Active Substance: RIVAROXABAN
     Indication: ATRIAL FIBRILLATION
     Dosage: UNK

REACTIONS (9)
  - Dizziness [Unknown]
  - Pelvic haematoma [Unknown]
  - Hypotension [Unknown]
  - Arterial haemorrhage [Unknown]
  - Haemoglobin decreased [Unknown]
  - Off label use [Unknown]
  - Intra-abdominal haematoma [Unknown]
  - Poor peripheral circulation [Unknown]
  - Fall [Unknown]
